FAERS Safety Report 6983955-0 (Version None)
Quarter: 2010Q3

REPORT INFORMATION
  Report Type: 
  Country: None (occurrence: None)
  Receive Date: 20100914
  Receipt Date: 20090424
  Transmission Date: 20110219
  Serious: Yes (Other)
  Sender: FDA-Public Use
  Company Number: US-WYE-H09108209

PATIENT

DRUGS (1)
  1. TYGACIL [Suspect]
     Indication: ABDOMINAL INFECTION

REACTIONS (1)
  - PANCREATITIS [None]
